FAERS Safety Report 5064987-9 (Version None)
Quarter: 2006Q3

REPORT INFORMATION
  Report Type: 
  Country: None (occurrence: None)
  Receive Date: 20060728
  Receipt Date: 20060614
  Transmission Date: 20061208
  Serious: Yes (Hospitalization, Other)
  Sender: FDA-Public Use
  Company Number: FR-ABBOTT-06P-056-0335987-00

PATIENT
  Age: 49 Year
  Sex: Male
  Weight: 66 kg

DRUGS (11)
  1. KALETRA [Suspect]
     Indication: HIV INFECTION
     Route: 048
     Dates: start: 20060506, end: 20060525
  2. CYCLOPHOSPHAMIDE [Suspect]
     Indication: DRUG USE FOR UNKNOWN INDICATION
     Route: 042
     Dates: start: 20060510, end: 20060510
  3. METHOTREXATE [Suspect]
     Indication: DRUG USE FOR UNKNOWN INDICATION
     Dosage: ROUTE: IT
     Dates: start: 20060510, end: 20060518
  4. RITUXIMAB [Suspect]
     Indication: DRUG USE FOR UNKNOWN INDICATION
     Route: 042
     Dates: start: 20060510, end: 20060510
  5. DOXORUBICIN HCL [Suspect]
     Indication: DRUG USE FOR UNKNOWN INDICATION
     Route: 042
     Dates: start: 20060510, end: 20060510
  6. VINCRISTINE [Suspect]
     Indication: DRUG USE FOR UNKNOWN INDICATION
     Route: 042
     Dates: start: 20060510, end: 20060510
  7. BACTRIM [Suspect]
     Indication: DRUG USE FOR UNKNOWN INDICATION
  8. FLUCONAZOLE [Suspect]
     Indication: DRUG USE FOR UNKNOWN INDICATION
  9. OMEPRAZOLE [Suspect]
     Indication: DRUG USE FOR UNKNOWN INDICATION
  10. TRUVADA [Concomitant]
     Indication: HIV INFECTION
  11. CHEMOTHERAPY [Concomitant]
     Indication: LYMPHOMA

REACTIONS (4)
  - B-CELL LYMPHOMA [None]
  - DRUG INTERACTION [None]
  - NEUTROPENIA [None]
  - PANCYTOPENIA [None]
